FAERS Safety Report 15765991 (Version 2)
Quarter: 2020Q2

REPORT INFORMATION
  Report Type: Spontaneous
  Country: US (occurrence: US)
  Receive Date: 20181227
  Receipt Date: 20200420
  Transmission Date: 20200713
  Serious: No
  Sender: FDA-Public Use
  Company Number: US-SA-2018SA393058

PATIENT
  Age: 46 Year
  Sex: Male
  Weight: 82.54 kg

DRUGS (1)
  1. DUPIXENT [Suspect]
     Active Substance: DUPILUMAB
     Indication: DERMATITIS ATOPIC
     Dosage: 300 MG, QOW
     Route: 058
     Dates: start: 2016, end: 2020

REACTIONS (3)
  - Lacrimation increased [Unknown]
  - Product dose omission [Unknown]
  - Gout [Unknown]

NARRATIVE: CASE EVENT DATE: 20200301
